FAERS Safety Report 10643987 (Version 3)
Quarter: 2015Q1

REPORT INFORMATION
  Report Type: Spontaneous
  Country: JP (occurrence: JP)
  Receive Date: 20141210
  Receipt Date: 20150323
  Transmission Date: 20150720
  Serious: Yes (Other)
  Sender: FDA-Public Use
  Company Number: JP-009507513-1412JPN002809

PATIENT
  Age: 61 Year
  Sex: Male
  Weight: 67 kg

DRUGS (3)
  1. BELSOMRA [Suspect]
     Active Substance: SUVOREXANT
     Indication: INSOMNIA
     Dosage: 20 MG, QD
     Route: 048
     Dates: start: 20141128, end: 20141130
  2. ACAMPROSATE CALCIUM. [Suspect]
     Active Substance: ACAMPROSATE CALCIUM
     Indication: ALCOHOLISM
     Dosage: 666 MG, TID
     Route: 048
     Dates: start: 20141101
  3. MYSLEE [Concomitant]
     Active Substance: ZOLPIDEM TARTRATE
     Indication: INSOMNIA
     Dosage: 10 MG, QD, FORMULATION: POR (DIVIDED DOSE FREQUENCY UNKNOWN)
     Route: 048

REACTIONS (3)
  - Depression [Recovered/Resolved]
  - Nightmare [Recovering/Resolving]
  - Sleep paralysis [Recovering/Resolving]

NARRATIVE: CASE EVENT DATE: 20141128
